FAERS Safety Report 9636717 (Version 2)
Quarter: 2013Q4

REPORT INFORMATION
  Report Type: Report from Study
  Country: FR (occurrence: FR)
  Receive Date: 20131022
  Receipt Date: 20131112
  Transmission Date: 20140711
  Serious: Yes (Death)
  Sender: FDA-Public Use
  Company Number: FR-ROCHE-1292086

PATIENT
  Sex: Male
  Weight: 55 kg

DRUGS (22)
  1. ZELBORAF [Suspect]
     Indication: NEOPLASM MALIGNANT
     Route: 065
  2. ZELBORAF [Suspect]
     Dosage: LAST ADMINISTRATION DATE 13/MAY/2013
     Route: 048
     Dates: start: 20130419
  3. ZOLPIDEM [Concomitant]
     Indication: AGITATION
     Route: 048
     Dates: start: 20130521
  4. PANTOPRAZOLE [Concomitant]
     Indication: GASTRIC PH DECREASED
     Route: 048
     Dates: start: 20130423
  5. KEPPRA [Concomitant]
     Route: 048
  6. LYSANXIA [Concomitant]
     Indication: AGITATION
     Dosage: DROP
     Route: 048
  7. ZOPICLONE [Concomitant]
     Route: 065
  8. RISPERIDONE [Concomitant]
     Route: 065
  9. LEVOTHYROXINE [Concomitant]
     Route: 065
  10. PREDNISOLONE [Concomitant]
     Route: 065
  11. EDUCTYL [Concomitant]
     Route: 065
  12. NORMACOL (FRANCE) [Concomitant]
     Dosage: ENEMA
     Route: 065
  13. LOVENOX [Concomitant]
     Route: 065
  14. HALDOL [Concomitant]
     Dosage: DROP
     Route: 065
  15. GLUCOSE [Concomitant]
     Dosage: DRIP
     Route: 065
  16. INSULIN [Concomitant]
  17. OXYNORMORO [Concomitant]
     Route: 065
  18. PARACETAMOL [Concomitant]
  19. FUROSEMIDE [Concomitant]
     Route: 065
  20. RYTHMOL [Concomitant]
     Route: 065
  21. DIFFU-K [Concomitant]
     Route: 065
  22. KARDEGIC [Concomitant]
     Route: 065

REACTIONS (5)
  - Disease progression [Fatal]
  - Urinary tract infection [Fatal]
  - Scab [Fatal]
  - Diabetes mellitus [Fatal]
  - General physical health deterioration [Fatal]
